FAERS Safety Report 6655418-3 (Version None)
Quarter: 2010Q1

REPORT INFORMATION
  Report Type: 
  Country: None (occurrence: None)
  Receive Date: 20100329
  Receipt Date: 20100318
  Transmission Date: 20100710
  Serious: Yes (Other)
  Sender: FDA-Public Use
  Company Number: DE-ASTRAZENECA-2010SE12287

PATIENT
  Sex: Female

DRUGS (7)
  1. QUETIAPINE [Suspect]
     Route: 048
  2. ACETYLSALICYLIC ACID [Suspect]
  3. PARACETAMOL [Suspect]
  4. PANTOPRAZOLE SODIUM [Suspect]
     Dosage: 10 TABLETS
  5. PIPAMPERONE [Suspect]
  6. CAFFEINE [Suspect]
  7. PREGABALIN [Suspect]

REACTIONS (4)
  - BODY TEMPERATURE DECREASED [None]
  - CONFUSIONAL STATE [None]
  - SOMNOLENCE [None]
  - SUICIDE ATTEMPT [None]
